FAERS Safety Report 19074226 (Version 1)
Quarter: 2021Q1

REPORT INFORMATION
  Report Type: Spontaneous
  Country: CA (occurrence: CA)
  Receive Date: 20210330
  Receipt Date: 20210330
  Transmission Date: 20210420
  Serious: Yes (Other)
  Sender: FDA-Public Use
  Company Number: CA-PFIZER INC-2021329464

PATIENT
  Age: 73 Year
  Sex: Male

DRUGS (6)
  1. HYDROXYCHLOROQUINE [Concomitant]
     Active Substance: HYDROXYCHLOROQUINE
     Dosage: 1 DF (DOSAGE UNKNOWN)
  2. XELJANZ [Suspect]
     Active Substance: TOFACITINIB CITRATE
     Dosage: 5 MG, 1X/DAY
     Route: 048
     Dates: start: 202001
  3. METHOTREXATE. [Concomitant]
     Active Substance: METHOTREXATE
     Dosage: 1 DF (DOSAGE IS UNKNOWN)
  4. XELJANZ [Suspect]
     Active Substance: TOFACITINIB CITRATE
     Indication: RHEUMATOID ARTHRITIS
     Dosage: 5 MG, 2X/DAY
     Route: 048
     Dates: start: 2019, end: 2019
  5. ALLOPURINOL. [Concomitant]
     Active Substance: ALLOPURINOL
     Dosage: 1 DF (DOSAGE UNKNOWN)
  6. PREDNISONE. [Concomitant]
     Active Substance: PREDNISONE
     Dosage: 1 DF (DOSAGE UNKNOWN)

REACTIONS (13)
  - Tendon pain [Unknown]
  - Thirst [Unknown]
  - Weight increased [Unknown]
  - Renal impairment [Unknown]
  - Dyspnoea [Unknown]
  - Bone pain [Unknown]
  - Dysstasia [Unknown]
  - Dyskinesia [Unknown]
  - Gait disturbance [Unknown]
  - Eating disorder [Unknown]
  - Arthralgia [Unknown]
  - Fatigue [Unknown]
  - Dry mouth [Unknown]
